FAERS Safety Report 5035624-4 (Version None)
Quarter: 2006Q2

REPORT INFORMATION
  Report Type: 
  Country: None (occurrence: None)
  Receive Date: 20060627
  Receipt Date: 20060608
  Transmission Date: 20061013
  Serious: Yes (Hospitalization)
  Sender: FDA-Public Use
  Company Number: JP-JPN-A200602020

PATIENT
  Age: 1 Day
  Sex: Male
  Weight: 2.55 kg

DRUGS (5)
  1. PAXIL [Suspect]
     Indication: DEPRESSION
     Dosage: 30MG PER DAY
     Dates: end: 20060502
  2. DEPAS [Concomitant]
     Indication: DEPRESSION
     Dates: end: 20060502
  3. EVAMYL [Concomitant]
     Indication: DEPRESSION
     Dates: end: 20060502
  4. INSULIN [Concomitant]
     Indication: GESTATIONAL DIABETES
     Dates: end: 20060502
  5. INSULIN [Concomitant]
     Dosage: 14IU PER DAY
     Dates: end: 20060502

REACTIONS (8)
  - CRYING [None]
  - DRUG EXPOSURE DURING PREGNANCY [None]
  - DRUG WITHDRAWAL SYNDROME NEONATAL [None]
  - IRRITABILITY [None]
  - NEONATAL DISORDER [None]
  - PYREXIA [None]
  - TACHYPNOEA [None]
  - TREMOR NEONATAL [None]
